FAERS Safety Report 7206156-X (Version None)
Quarter: 2010Q4

REPORT INFORMATION
  Report Type: 
  Country: None (occurrence: None)
  Receive Date: 20101229
  Receipt Date: 20101229
  Transmission Date: 20110411
  Serious: Yes (Hospitalization, Other)
  Sender: FDA-Public Use
  Company Number: None

PATIENT
  Age: 13 Month
  Sex: Female
  Weight: 8.89 kg

DRUGS (2)
  1. LANSOPRAZOLE [Suspect]
     Indication: GASTROOESOPHAGEAL REFLUX DISEASE
     Dosage: 15MG 1/2 A TAB BID G-TUBE
     Dates: start: 20101209
  2. LANSOPRAZOLE [Suspect]
     Indication: GASTROOESOPHAGEAL REFLUX DISEASE
     Dosage: 15MG 1/2 A TAB BID G-TUBE
     Dates: start: 20101210

REACTIONS (4)
  - CONVULSION [None]
  - COUGH [None]
  - DRUG INEFFECTIVE [None]
  - VOMITING [None]
